FAERS Safety Report 25485142 (Version 2)
Quarter: 2025Q4

REPORT INFORMATION
  Report Type: Spontaneous
  Country: US (occurrence: US)
  Receive Date: 20250626
  Receipt Date: 20251114
  Transmission Date: 20260118
  Serious: Yes (Other)
  Sender: NOVO NORDISK
  Company Number: US-NOVOPROD-1466144

PATIENT
  Age: 61 Year
  Sex: Female

DRUGS (5)
  1. NOVOLOG [Suspect]
     Active Substance: INSULIN ASPART
     Indication: Product used for unknown indication
     Dosage: UNK
     Route: 058
     Dates: start: 2014
  2. NOVOLOG [Suspect]
     Active Substance: INSULIN ASPART
     Dosage: 28 IU, TID (DOSE INCREASED)
  3. NOVOLOG [Suspect]
     Active Substance: INSULIN ASPART
     Dosage: 28 IU, TID
  4. LANTUS [Concomitant]
     Active Substance: INSULIN GLARGINE
     Indication: Product used for unknown indication
     Dosage: UNK
  5. LANTUS [Concomitant]
     Active Substance: INSULIN GLARGINE
     Dosage: 20 IU, QD

REACTIONS (7)
  - Salivary gland calculus [Recovering/Resolving]
  - Parotitis [Recovering/Resolving]
  - Arthralgia [Recovering/Resolving]
  - Myalgia [Recovering/Resolving]
  - Confusional state [Unknown]
  - Diarrhoea [Recovered/Resolved with Sequelae]
  - Nausea [Recovered/Resolved with Sequelae]

NARRATIVE: CASE EVENT DATE: 20210630
